FAERS Safety Report 11318038 (Version 1)
Quarter: 2015Q3

REPORT INFORMATION
  Report Type: Spontaneous
  Country: FR (occurrence: FR)
  Receive Date: 20150728
  Receipt Date: 20150728
  Transmission Date: 20151125
  Serious: Yes (Hospitalization)
  Sender: FDA-Public Use
  Company Number: FR-ASTRAZENECA-2015SE71881

PATIENT
  Age: 496 Month
  Sex: Female

DRUGS (5)
  1. DUOPLAVIN [Concomitant]
     Active Substance: ASPIRIN\CLOPIDOGREL
  2. PERINDOPRIL [Concomitant]
     Active Substance: PERINDOPRIL
     Dates: end: 201505
  3. CRESTOR [Suspect]
     Active Substance: ROSUVASTATIN CALCIUM
     Route: 048
     Dates: start: 201402, end: 20150702
  4. LYRICA [Concomitant]
     Active Substance: PREGABALIN
     Dates: start: 201312
  5. OXYNORM [Concomitant]
     Active Substance: OXYCODONE HYDROCHLORIDE
     Dates: start: 201312

REACTIONS (3)
  - Fatigue [Not Recovered/Not Resolved]
  - Gait disturbance [Not Recovered/Not Resolved]
  - Condition aggravated [Not Recovered/Not Resolved]

NARRATIVE: CASE EVENT DATE: 201406
